FAERS Safety Report 14343437 (Version 3)
Quarter: 2018Q2

REPORT INFORMATION
  Report Type: Spontaneous
  Country: JP (occurrence: JP)
  Receive Date: 20180102
  Receipt Date: 20180503
  Transmission Date: 20180711
  Serious: Yes (Death, Hospitalization, Other)
  Sender: FDA-Public Use
  Company Number: JP-PFIZER INC-2017555457

PATIENT
  Age: 52 Year
  Sex: Male

DRUGS (17)
  1. METHOTREXATE. [Suspect]
     Active Substance: METHOTREXATE
     Dosage: 6 MG AT 8:00 ON WEDNESDAY, 6 MG AT 20:00 ON WEDNESDAY, 4 MG AT 8:00 ON THURSDAY
     Dates: start: 20130626
  2. HYPEN [Suspect]
     Active Substance: ETODOLAC
     Indication: RHEUMATOID ARTHRITIS
     Dosage: 200 MG, 2X/DAY
     Route: 048
     Dates: start: 20160629
  3. CELECOX [Suspect]
     Active Substance: CELECOXIB
     Indication: RHEUMATOID ARTHRITIS
     Dosage: 100 MG, 1X/DAY
     Route: 048
     Dates: start: 20140409, end: 20160628
  4. METHOTREXATE. [Suspect]
     Active Substance: METHOTREXATE
     Dosage: 4 MG AT 8:00 ON WEDNESDAY, 4 MG AT 20:00 ON WEDNESDAY, 4 MG AT 8:00 ON THURSDAY
     Route: 048
     Dates: start: 20130605, end: 20130625
  5. CARERAM [Suspect]
     Active Substance: IGURATIMOD
     Indication: RHEUMATOID ARTHRITIS
     Dosage: 25 MG, 1X/DAY
     Route: 048
     Dates: start: 20140826, end: 20140916
  6. AZULFIDINE EN-TABS [Concomitant]
     Active Substance: SULFASALAZINE
     Indication: RHEUMATOID ARTHRITIS
     Dosage: 500 MG, 2X/DAY
     Route: 048
     Dates: start: 20121026, end: 20121216
  7. HUMIRA [Concomitant]
     Active Substance: ADALIMUMAB
     Indication: RHEUMATOID ARTHRITIS
     Dosage: 40 MG, EVERY 2 WEEKS
     Route: 058
     Dates: start: 20121212, end: 20130130
  8. HUMIRA [Concomitant]
     Active Substance: ADALIMUMAB
     Dosage: 40 MG, EVERY 3 WEEKS
     Route: 058
     Dates: start: 20130220, end: 20140826
  9. METHOTREXATE. [Suspect]
     Active Substance: METHOTREXATE
     Dosage: 4 MG AT 20:00 ON WEDNESDAY, 4 MG AT 8:00 ON THURSDAY, 2 MG AT 20:00 ON THURSDAY; THRICE DAILY
     Route: 048
     Dates: start: 20120718, end: 20120819
  10. METHOTREXATE. [Suspect]
     Active Substance: METHOTREXATE
     Dosage: 4 MG AT 20:00 ON WEDNESDAY, 4 MG AT 8:00 ON THURSDAY, 4 MG AT 20:00 ON THURSDAY; THRICE DAILY
     Route: 048
     Dates: start: 20120820, end: 20121025
  11. METHOTREXATE. [Suspect]
     Active Substance: METHOTREXATE
     Dosage: 4 MG AT 8:00 ON WEDNESDAY, 2 MG AT 20:00 ON WEDNESDAY, 2 MG AT 8:00 ON THURSDAY
     Route: 048
     Dates: start: 20121212, end: 20130423
  12. METHOTREXATE. [Suspect]
     Active Substance: METHOTREXATE
     Dosage: 4 MG AT 8:00 ON WEDNESDAY, 4 MG AT 20:00 ON WEDNESDAY, 2 MG AT 8:00 ON THURSDAY
     Route: 048
     Dates: start: 20130424, end: 20130604
  13. METHOTREXATE. [Suspect]
     Active Substance: METHOTREXATE
     Indication: RHEUMATOID ARTHRITIS
     Dosage: 4 MG AT 20:00 ON WEDNSDAY, 2 MG AT 8:00 ON THURSDAY, 2 MG AT 20:00 ON THURSDAY; THRICE DAILY
     Route: 048
     Dates: start: 20120314, end: 20120717
  14. CARERAM [Suspect]
     Active Substance: IGURATIMOD
     Dosage: 25 MG, 2X/DAY
     Route: 048
     Dates: start: 20140917
  15. KENACORT [Concomitant]
     Active Substance: TRIAMCINOLONE
     Dosage: UNK UNK, UNKNOWN FREQ.
     Route: 030
     Dates: start: 20160629, end: 20160629
  16. SULTAMICILLIN TOSILATE [Suspect]
     Active Substance: SULTAMICILLIN TOSYLATE
     Indication: CELLULITIS
     Dosage: 375 MG, 3X/DAY
     Route: 048
     Dates: start: 20160702
  17. ORENCIA [Concomitant]
     Active Substance: ABATACEPT
     Indication: RHEUMATOID ARTHRITIS
     Dosage: 125 MG, EVERY 2 WEEKS
     Route: 058
     Dates: start: 20160629, end: 20160629

REACTIONS (11)
  - Pulmonary congestion [Fatal]
  - Pancytopenia [Fatal]
  - Proteinuria [Not Recovered/Not Resolved]
  - Off label use [Unknown]
  - Small intestinal haemorrhage [Fatal]
  - Duodenal ulcer [Fatal]
  - Pulmonary oedema [Fatal]
  - Psoas abscess [Fatal]
  - Vascular purpura [Unknown]
  - Sepsis [Fatal]
  - Fungal infection [Fatal]

NARRATIVE: CASE EVENT DATE: 20140409
